FAERS Safety Report 5038762-5 (Version None)
Quarter: 2006Q2

REPORT INFORMATION
  Report Type: 
  Country: None (occurrence: None)
  Receive Date: 20060627
  Receipt Date: 20060627
  Transmission Date: 20061013
  Serious: No
  Sender: FDA-Public Use
  Company Number: None

PATIENT
  Sex: Female
  Weight: 75.2971 kg

DRUGS (5)
  1. RITUXAN [Suspect]
     Indication: RHEUMATOID ARTHRITIS
     Dosage: 1000 MG TWO TIMES IV DRIP
     Route: 041
     Dates: start: 20060516, end: 20060516
  2. RITUXAN [Suspect]
     Indication: RHEUMATOID ARTHRITIS
     Dosage: 1000 MG TWO TIMES IV DRIP
     Route: 041
     Dates: start: 20060530, end: 20060530
  3. ENBREL [Concomitant]
  4. METHOTREXATE [Concomitant]
  5. REMICADE [Concomitant]

REACTIONS (3)
  - HEADACHE [None]
  - HERPES ZOSTER [None]
  - NAUSEA [None]
